FAERS Safety Report 6829946-1 (Version None)
Quarter: 2010Q3

REPORT INFORMATION
  Report Type: 
  Country: None (occurrence: None)
  Receive Date: 20100711
  Receipt Date: 20100409
  Transmission Date: 20110219
  Serious: No
  Sender: FDA-Public Use
  Company Number: US-ALLERGAN-1004546US

PATIENT
  Age: 57 Year
  Sex: Female

DRUGS (4)
  1. LATISSE [Suspect]
     Indication: GROWTH OF EYELASHES
     Dosage: 1 GTT, QHS
     Route: 061
     Dates: start: 20100326, end: 20100328
  2. LIPITOR [Concomitant]
     Indication: BLOOD CHOLESTEROL INCREASED
  3. SINGULAIR [Concomitant]
     Indication: HYPERSENSITIVITY
  4. ZYRTEC [Concomitant]
     Indication: HYPERSENSITIVITY

REACTIONS (4)
  - EYE PRURITUS [None]
  - IRIS DISORDER [None]
  - OCULAR HYPERAEMIA [None]
  - PUPILLARY DISORDER [None]
